FAERS Safety Report 8824823 (Version 1)
Quarter: 2012Q4

REPORT INFORMATION
  Report Type: 
  Country: US (occurrence: US)
  Receive Date: 20121004
  Receipt Date: 20121004
  Transmission Date: 20130627
  Serious: Yes (Other)
  Sender: FDA-Public Use
  Company Number: US-JNJFOC-20120910695

PATIENT
  Age: 56 None
  Sex: Female
  Weight: 147.87 kg

DRUGS (2)
  1. REMICADE [Suspect]
     Indication: PSORIATIC ARTHROPATHY
     Route: 042
     Dates: start: 2000
  2. TRANDOLAPRIL/VERAPAMIL [Suspect]
     Indication: HYPERTENSION
     Route: 048

REACTIONS (7)
  - Benign breast neoplasm [Recovered/Resolved]
  - Breast discharge [Recovering/Resolving]
  - Seroma [Recovering/Resolving]
  - Breast pain [Unknown]
  - Breast swelling [Unknown]
  - Staphylococcal infection [Not Recovered/Not Resolved]
  - Blood pressure fluctuation [Not Recovered/Not Resolved]
